FAERS Safety Report 4916711-5 (Version None)
Quarter: 2006Q1

REPORT INFORMATION
  Report Type: 
  Country: None (occurrence: None)
  Receive Date: 20060214
  Receipt Date: 20060206
  Transmission Date: 20060701
  Serious: Yes (Death)
  Sender: FDA-Public Use
  Company Number: TAP2005Q02245

PATIENT
  Sex: Male

DRUGS (14)
  1. LUPRON [Suspect]
     Indication: PROSTATE CANCER
     Dosage: 30 MG, 1 IN 4 M,
     Dates: start: 20050831, end: 20051220
  2. FOSAMAX [Concomitant]
  3. VASOTEC [Concomitant]
  4. ADALAT XL (NIFEDIPINE) [Concomitant]
  5. PLAVIX [Concomitant]
  6. RHOXAL BISOPROLOL (BISOPROLOL FUMARATE) [Concomitant]
  7. ASAPHEN (ACETYLSALICYLIC ACID) [Concomitant]
  8. NOVO TRIAZIDE [Concomitant]
  9. APO MEGESTROL (MEGESTROL) [Concomitant]
  10. APO OXAZEPAM (OXAZEPAM) [Concomitant]
  11. RIVASIMVASTATIN (SIMVASTATIN) [Concomitant]
  12. CELEBREX [Concomitant]
  13. RHO NITRO (GLYCERYL TRINITRATE) [Concomitant]
  14. OXYCONTIN [Concomitant]

REACTIONS (2)
  - CONDITION AGGRAVATED [None]
  - LUNG NEOPLASM MALIGNANT [None]
